FAERS Safety Report 4449768-9 (Version None)
Quarter: 2004Q3

REPORT INFORMATION
  Report Type: 
  Country: None (occurrence: None)
  Receive Date: 20040802
  Receipt Date: 20040319
  Transmission Date: 20050211
  Serious: Yes (Other)
  Sender: FDA-Public Use
  Company Number: US-SHR-04-022834

PATIENT
  Sex: Male
  Weight: 86.2 kg

DRUGS (1)
  1. MAGNEVIST [Suspect]
     Indication: NUCLEAR MAGNETIC RESONANCE IMAGING BRAIN
     Dosage: 18 ML, 1 DOSE, INTRAVENOUS
     Route: 042
     Dates: start: 20040319, end: 20040319

REACTIONS (6)
  - BLOOD PRESSURE DECREASED [None]
  - BURNING SENSATION [None]
  - HYPERHIDROSIS [None]
  - HYPERSENSITIVITY [None]
  - LOSS OF CONSCIOUSNESS [None]
  - URTICARIA GENERALISED [None]
